FAERS Safety Report 23778878 (Version 2)
Quarter: 2024Q2

REPORT INFORMATION
  Report Type: Spontaneous
  Country: DE (occurrence: DE)
  Receive Date: 20240424
  Receipt Date: 20240530
  Transmission Date: 20240716
  Serious: Yes (Hospitalization, Other)
  Sender: FDA-Public Use
  Company Number: DE-UCBSA-2024018513

PATIENT
  Age: 4 Year
  Sex: Male

DRUGS (21)
  1. DEXAMETHASONE [Suspect]
     Active Substance: DEXAMETHASONE
     Indication: Product used for unknown indication
     Route: 065
     Dates: start: 20220328
  2. PREDNISONE [Suspect]
     Active Substance: PREDNISONE
     Indication: Chemotherapy
     Route: 065
     Dates: end: 20211007
  3. KEPPRA [Suspect]
     Active Substance: LEVETIRACETAM
     Indication: Seizure
     Dosage: 500-0-500 MG TAPERED
     Route: 065
     Dates: start: 20220510, end: 20220704
  4. KEPPRA [Suspect]
     Active Substance: LEVETIRACETAM
     Indication: Seizure
     Dosage: 75-0-50 MG
     Route: 065
     Dates: start: 20220328
  5. KEPPRA [Suspect]
     Active Substance: LEVETIRACETAM
     Indication: Seizure
     Route: 065
     Dates: start: 20211007
  6. KEPPRA [Suspect]
     Active Substance: LEVETIRACETAM
     Indication: Seizure
     Route: 065
     Dates: start: 20211007
  7. MERCAPTOPURINE [Suspect]
     Active Substance: MERCAPTOPURINE
     Indication: Chemotherapy
     Dosage: 35 MILLIGRAM
     Route: 065
     Dates: start: 20220713
  8. DOXORUBICIN [Suspect]
     Active Substance: DOXORUBICIN
     Indication: Product used for unknown indication
     Route: 065
     Dates: start: 20220328
  9. METHOTREXATE [Suspect]
     Active Substance: METHOTREXATE
     Indication: Chemotherapy
     Dosage: 15 MILLIGRAM
     Route: 065
     Dates: start: 20220713
  10. METHOTREXATE [Suspect]
     Active Substance: METHOTREXATE
     Indication: Chemotherapy
     Dosage: UNK (INCREASED IN ADVANCE)
     Route: 065
     Dates: start: 20230303
  11. VINCRISTINE [Suspect]
     Active Substance: VINCRISTINE
     Indication: Chemotherapy
     Dosage: UNK
     Route: 065
     Dates: start: 20220328
  12. VINCRISTINE [Suspect]
     Active Substance: VINCRISTINE
     Indication: Chemotherapy
     Route: 065
     Dates: end: 20211007
  13. DAUNORUBICIN [Suspect]
     Active Substance: DAUNORUBICIN
     Indication: Chemotherapy
     Route: 065
     Dates: end: 20211007
  14. VIMPAT [Suspect]
     Active Substance: LACOSAMIDE
     Indication: Seizure
     Dosage: 75-0-50 MG/LAST ADMIN DATE: 2022
     Route: 065
     Dates: start: 20220328
  15. VIMPAT [Suspect]
     Active Substance: LACOSAMIDE
     Indication: Seizure
     Dosage: 150-0-150 MG
     Route: 065
     Dates: start: 20230417
  16. VIMPAT [Suspect]
     Active Substance: LACOSAMIDE
     Indication: Seizure
     Dosage: 100-0-100 MG//LAST ADMIN DATE: 2023
     Route: 065
     Dates: start: 20230303
  17. VIMPAT [Suspect]
     Active Substance: LACOSAMIDE
     Indication: Seizure
     Dosage: 175-0-150 MG
     Route: 065
     Dates: start: 20240313
  18. VIMPAT [Suspect]
     Active Substance: LACOSAMIDE
     Indication: Seizure
     Dosage: 100-0-50 MG
     Route: 065
     Dates: start: 20220713
  19. PEG/L-ASPARAGINASE [Suspect]
     Active Substance: PEGASPARGASE
     Indication: Chemotherapy
     Route: 065
     Dates: start: 20220328
  20. PEG/L-ASPARAGINASE [Suspect]
     Active Substance: PEGASPARGASE
     Indication: Chemotherapy
     Route: 065
     Dates: end: 20211007
  21. KEPPRA [Suspect]
     Active Substance: LEVETIRACETAM
     Indication: Seizure
     Route: 065
     Dates: start: 20211007

REACTIONS (17)
  - Liver function test abnormal [Unknown]
  - Middle insomnia [Unknown]
  - Status epilepticus [Unknown]
  - Pyrexia [Unknown]
  - Occipital lobe epilepsy [Recovered/Resolved]
  - Headache [Unknown]
  - Cough [Unknown]
  - Eye movement disorder [Unknown]
  - Erythema infectiosum [Unknown]
  - Infection [Unknown]
  - Vomiting [Unknown]
  - Scratch [Unknown]
  - Muscle spasms [Unknown]
  - Partial seizures [Unknown]
  - Tinea infection [Unknown]
  - Epilepsy [Unknown]
  - Occipital lobe epilepsy [Unknown]

NARRATIVE: CASE EVENT DATE: 20220328
